FAERS Safety Report 16217383 (Version 1)
Quarter: 2019Q2

REPORT INFORMATION
  Report Type: Spontaneous
  Country: US (occurrence: US)
  Receive Date: 20190419
  Receipt Date: 20190419
  Transmission Date: 20190711
  Serious: No
  Sender: FDA-Public Use
  Company Number: US-PFIZER INC-2019164505

PATIENT
  Sex: Male

DRUGS (2)
  1. LYRICA [Suspect]
     Active Substance: PREGABALIN
     Indication: NEUROPATHY PERIPHERAL
     Dosage: 3 DF, DAILY (3 PILLS PER DAY)
  2. LYRICA [Suspect]
     Active Substance: PREGABALIN
     Dosage: 6 DF, DAILY (6 PILLS PER DAY)

REACTIONS (1)
  - Myalgia [Unknown]
